FAERS Safety Report 9162440 (Version 1)
Quarter: 2013Q1

REPORT INFORMATION
  Report Type: Report from Study
  Country: US (occurrence: US)
  Receive Date: 20130314
  Receipt Date: 20130314
  Transmission Date: 20140127
  Serious: Yes (Hospitalization)
  Sender: FDA-Public Use
  Company Number: US-ABBOTT-13P-163-1059780-00

PATIENT
  Age: 59 Year
  Sex: Male

DRUGS (8)
  1. HUMIRA [Suspect]
     Indication: COLITIS ULCERATIVE
     Dates: start: 201005, end: 201107
  2. HUMIRA [Suspect]
     Dates: start: 20130302
  3. ASA [Concomitant]
     Indication: PRODUCT USED FOR UNKNOWN INDICATION
     Dosage: 325 MG DAILY
  4. PROTONIX [Concomitant]
     Indication: GASTROOESOPHAGEAL REFLUX DISEASE
     Dosage: 40 MG DAILY
  5. METOPROLOL SUCCINATE [Concomitant]
     Indication: BLOOD PRESSURE
  6. LASIX [Concomitant]
     Dosage: 1 1/2 TAB TWICE DAILY
     Dates: start: 201212
  7. POTASSIUM [Concomitant]
     Indication: OEDEMA
     Dates: start: 201212
  8. ATORVASTATIN [Concomitant]
     Indication: BLOOD CHOLESTEROL
     Dates: start: 201212

REACTIONS (8)
  - Nephrolithiasis [Unknown]
  - Endocarditis [Unknown]
  - Cardiac failure congestive [Unknown]
  - Blood cholesterol [Unknown]
  - Kidney infection [Unknown]
  - Sepsis [Unknown]
  - Haematochezia [Not Recovered/Not Resolved]
  - Diarrhoea [Not Recovered/Not Resolved]
